FAERS Safety Report 8011788-5 (Version None)
Quarter: 2011Q4

REPORT INFORMATION
  Report Type: 
  Country: None (occurrence: None)
  Receive Date: 20111228
  Receipt Date: 20111226
  Transmission Date: 20120403
  Serious: Yes (Death, Hospitalization)
  Sender: FDA-Public Use
  Company Number: BR-ABBOTT-11P-020-0885538-00

PATIENT
  Sex: Female

DRUGS (1)
  1. HUMIRA [Suspect]
     Indication: RHEUMATOID ARTHRITIS
     Dates: start: 20090101

REACTIONS (7)
  - ERYSIPELAS [None]
  - CARDIAC ARREST [None]
  - PAIN IN EXTREMITY [None]
  - BLOOD PRESSURE FLUCTUATION [None]
  - INFECTION [None]
  - RESPIRATORY FAILURE [None]
  - SKIN ULCER [None]
